FAERS Safety Report 18465283 (Version 4)
Quarter: 2021Q2

REPORT INFORMATION
  Report Type: Report from Study
  Country: None (occurrence: US)
  Receive Date: 20201105
  Receipt Date: 20210609
  Transmission Date: 20210717
  Serious: Yes (Other)
  Sender: FDA-Public Use
  Company Number: US-ABBVIE-20K-163-3636569-00

PATIENT
  Sex: Male

DRUGS (1)
  1. HUMIRA [Suspect]
     Active Substance: ADALIMUMAB
     Indication: ANKYLOSING SPONDYLITIS
     Dosage: CITRATE FREE
     Route: 058

REACTIONS (5)
  - Spinal stenosis [Recovering/Resolving]
  - Influenza [Recovering/Resolving]
  - Pelvic pain [Recovering/Resolving]
  - Surgery [Not Recovered/Not Resolved]
  - Arthralgia [Unknown]
